FAERS Safety Report 6287928-5 (Version None)
Quarter: 2009Q3

REPORT INFORMATION
  Report Type: 
  Country: None (occurrence: None)
  Receive Date: 20090729
  Receipt Date: 20090724
  Transmission Date: 20100115
  Serious: Yes (Death, Hospitalization)
  Sender: FDA-Public Use
  Company Number: US-BRISTOL-MYERS SQUIBB COMPANY-14705214

PATIENT
  Age: 67 Year
  Sex: Male
  Weight: 89 kg

DRUGS (8)
  1. SPRYCEL [Suspect]
     Indication: MYELODYSPLASTIC SYNDROME
     Route: 048
     Dates: start: 20090402
  2. INTERFERON [Concomitant]
     Dosage: 5 X 10 (6) IU IV IN NS
     Route: 042
     Dates: start: 20090708, end: 20090709
  3. PROCRIT [Concomitant]
     Dosage: 1DF=40 THOUSAND TO 60 THOUSAND UNITS
     Route: 030
     Dates: start: 20080501
  4. CYPROHEPTADINE HCL [Concomitant]
     Route: 048
     Dates: start: 20090706
  5. CIPRO [Concomitant]
     Dosage: FOR 10DYS
     Dates: start: 20090707
  6. TEMAZEPAM [Concomitant]
     Dosage: 1TAB AT BEDTIME
     Route: 048
  7. FUROSEMIDE [Concomitant]
  8. CLADRIBINE [Concomitant]
     Dosage: 10MG DAILY X 3DAYS FROM 28-30MAY09.
     Dates: start: 20090223

REACTIONS (2)
  - HAEMORRHAGE [None]
  - MALIGNANT NEOPLASM PROGRESSION [None]
